FAERS Safety Report 16964520 (Version 2)
Quarter: 2019Q4

REPORT INFORMATION
  Report Type: Report from Study
  Country: DE (occurrence: DE)
  Receive Date: 20191028
  Receipt Date: 20191121
  Transmission Date: 20200122
  Serious: Yes (Hospitalization)
  Sender: FDA-Public Use
  Company Number: PHHO2019DE009482

PATIENT
  Age: 77 Year
  Sex: Male
  Weight: 64.5 kg

DRUGS (3)
  1. BLINDED ELTROMBOPAG [Suspect]
     Active Substance: ELTROMBOPAG
     Dosage: CODE NOT BROKEN
     Route: 048
     Dates: start: 20190920
  2. DECITABINE. [Concomitant]
     Active Substance: DECITABINE
     Indication: PRODUCT USED FOR UNKNOWN INDICATION
     Dosage: 20 MG/M2, QD
     Route: 065
     Dates: start: 20190805
  3. BLINDED ELTROMBOPAG [Suspect]
     Active Substance: ELTROMBOPAG
     Indication: ACUTE MYELOID LEUKAEMIA
     Dosage: CODE NOT BROKEN
     Route: 048
     Dates: start: 20190816, end: 20190829

REACTIONS (4)
  - Acute kidney injury [Not Recovered/Not Resolved]
  - Pneumonia [Recovered/Resolved]
  - Gingivitis [Recovered/Resolved]
  - Sinusitis bacterial [Not Recovered/Not Resolved]

NARRATIVE: CASE EVENT DATE: 20190919
